FAERS Safety Report 6247425-X (Version None)
Quarter: 2009Q2

REPORT INFORMATION
  Report Type: 
  Country: None (occurrence: None)
  Receive Date: 20090626
  Receipt Date: 20090616
  Transmission Date: 20091009
  Serious: Yes (Other)
  Sender: FDA-Public Use
  Company Number: US-ROCHE-533400

PATIENT
  Sex: Female
  Weight: 59 kg

DRUGS (1)
  1. ACCUTANE [Suspect]
     Dosage: REPORTED AS 40MG OD
     Route: 065
     Dates: start: 20010916, end: 20020208

REACTIONS (4)
  - COLITIS [None]
  - FIBROADENOMA OF BREAST [None]
  - INFLAMMATORY BOWEL DISEASE [None]
  - LIP DRY [None]
